FAERS Safety Report 19808281 (Version 1)
Quarter: 2021Q3

REPORT INFORMATION
  Report Type: Report from Study
  Country: None (occurrence: TR)
  Receive Date: 20210908
  Receipt Date: 20210908
  Transmission Date: 20211014
  Serious: Yes (Death)
  Sender: FDA-Public Use
  Company Number: TR-ABBVIE-21K-161-4072003-00

PATIENT
  Sex: Male
  Weight: 70 kg

DRUGS (6)
  1. MADOPAR HBS [Concomitant]
     Active Substance: BENSERAZIDE HYDROCHLORIDE\LEVODOPA
     Indication: PARKINSON^S DISEASE
     Route: 048
  2. CITOLES [Concomitant]
     Active Substance: ESCITALOPRAM OXALATE
     Indication: SLEEP DISORDER
     Route: 048
     Dates: start: 2014
  3. DUODOPA [Suspect]
     Active Substance: CARBIDOPA\LEVODOPA
     Indication: PARKINSON^S DISEASE
     Dosage: MORNING DOSE (ML): 2.00 CONTINIOUS DOSE (ML): 2.00 EXTRA DOSE (ML): 0.50
     Route: 050
     Dates: start: 20180523
  4. DUODOPA [Suspect]
     Active Substance: CARBIDOPA\LEVODOPA
  5. VASOSERC [Concomitant]
     Indication: PARKINSON^S DISEASE
     Route: 048
  6. ZESTAT [Concomitant]
     Indication: SLEEP DISORDER

REACTIONS (1)
  - Death [Fatal]

NARRATIVE: CASE EVENT DATE: 20210906
